FAERS Safety Report 8820116 (Version 1)
Quarter: 2012Q4

REPORT INFORMATION
  Report Type: Report from Study
  Country: RU (occurrence: RU)
  Receive Date: 20121001
  Receipt Date: 20121001
  Transmission Date: 20130627
  Serious: Yes (Hospitalization)
  Sender: FDA-Public Use
  Company Number: PHHY2012RU082994

PATIENT
  Age: 51 Year
  Sex: Female

DRUGS (3)
  1. TASIGNA [Suspect]
     Dosage: 800 mg, UNK
     Route: 048
     Dates: start: 20111011, end: 20120403
  2. TASIGNA [Suspect]
     Dosage: 600 mg, daily
     Dates: start: 20120706
  3. NO TREATMENT RECEIVED [Suspect]

REACTIONS (1)
  - Haemorrhagic disorder [Recovering/Resolving]
